FAERS Safety Report 5062923-2 (Version None)
Quarter: 2006Q3

REPORT INFORMATION
  Report Type: 
  Country: None (occurrence: None)
  Receive Date: 20060724
  Receipt Date: 20060710
  Transmission Date: 20061208
  Serious: Yes (Death)
  Sender: FDA-Public Use
  Company Number: MC200600448

PATIENT
  Age: 82 Year
  Sex: Female
  Weight: 77 kg

DRUGS (3)
  1. ANGIOMAX [Suspect]
     Dosage: 11.1 ML, INTRAVENOUS
     Route: 042
     Dates: start: 20060302, end: 20060302
  2. CARDEGIC (ACETYLSALICYLATE LYSINE) [Concomitant]
  3. LASIX [Concomitant]

REACTIONS (1)
  - DEATH [None]
